FAERS Safety Report 9208152 (Version 1)
Quarter: 2013Q2

REPORT INFORMATION
  Report Type: Spontaneous
  Country: GB (occurrence: GB)
  Receive Date: 20130403
  Receipt Date: 20130403
  Transmission Date: 20140414
  Serious: Yes (Other)
  Sender: FDA-Public Use
  Company Number: PHHY2013GB030932

PATIENT
  Age: 71 Year
  Sex: Female
  Weight: 70 kg

DRUGS (4)
  1. AMLODIPINE [Suspect]
     Indication: HYPERTENSION
     Dosage: 10 MG, UNK
     Dates: end: 20130316
  2. CITALOPRAM [Concomitant]
     Indication: DEPRESSION
     Dosage: 20 MG, STARTED 6 MONTHS AGO
     Route: 048
  3. LANSOPRAZOLE [Concomitant]
     Dosage: 15 MG, STARTED FOUR MONTHS AGO
  4. SIMVASTATIN [Concomitant]
     Dosage: UNKNOWN DOSE STARTED 3 YEARS AGO

REACTIONS (2)
  - Loose tooth [Not Recovered/Not Resolved]
  - Gingival hyperplasia [Not Recovered/Not Resolved]
